FAERS Safety Report 14681598 (Version 1)
Quarter: 2018Q1

REPORT INFORMATION
  Report Type: Spontaneous
  Country: JP (occurrence: JP)
  Receive Date: 20180326
  Receipt Date: 20180326
  Transmission Date: 20180509
  Serious: Yes (Other)
  Sender: FDA-Public Use
  Company Number: JP-PFIZER INC-2018122073

PATIENT
  Age: 82 Year
  Sex: Female

DRUGS (2)
  1. CELECOX [Suspect]
     Active Substance: CELECOXIB
     Dosage: 100 MG, 1 TABLET, UNK
     Route: 048
     Dates: start: 201709
  2. PREDNISOLONE. [Concomitant]
     Active Substance: PREDNISOLONE

REACTIONS (2)
  - Peptic ulcer [Recovered/Resolved]
  - Haemoglobin decreased [Unknown]

NARRATIVE: CASE EVENT DATE: 20180110
